FAERS Safety Report 18653294 (Version 10)
Quarter: 2021Q3

REPORT INFORMATION
  Report Type: Spontaneous
  Country: CA (occurrence: CA)
  Receive Date: 20201222
  Receipt Date: 20210820
  Transmission Date: 20211014
  Serious: Yes (Other)
  Sender: FDA-Public Use
  Company Number: CA-CELLTRION INC.-2020CA024486

PATIENT

DRUGS (15)
  1. INFLECTRA [Suspect]
     Active Substance: INFLIXIMAB-DYYB
     Dosage: 300 MG, 0, 2, 6, AND THEN EVERY 8 WEEKS
     Route: 042
     Dates: start: 20200625, end: 20201125
  2. INFLECTRA [Suspect]
     Active Substance: INFLIXIMAB-DYYB
     Dosage: 600 MG, EVERY 6 WEEKS
     Route: 042
     Dates: start: 20210331
  3. INFLECTRA [Suspect]
     Active Substance: INFLIXIMAB-DYYB
     Dosage: 600, MG EVERY 6 WEEKS
     Route: 042
     Dates: start: 20210331, end: 20210623
  4. INFLECTRA [Suspect]
     Active Substance: INFLIXIMAB-DYYB
     Dosage: 600, MG EVERY 6 WEEKS
     Route: 042
     Dates: start: 20210623
  5. INFLECTRA [Suspect]
     Active Substance: INFLIXIMAB-DYYB
     Dosage: 300 MG,  0, 2, 6, AND THEN EVERY 8 WEEKS
     Route: 042
     Dates: start: 20201001
  6. INFLECTRA [Suspect]
     Active Substance: INFLIXIMAB-DYYB
     Dosage: 300 MG,  0, 2, 6, AND THEN EVERY 8 WEEKS
     Route: 042
     Dates: start: 20201125
  7. INFLECTRA [Suspect]
     Active Substance: INFLIXIMAB-DYYB
     Dosage: 365 MG, EVERY 6 WEEKS
     Route: 042
     Dates: start: 20210112
  8. INFLECTRA [Suspect]
     Active Substance: INFLIXIMAB-DYYB
     Dosage: 365 MG, EVERY 6 WEEKS
     Route: 042
     Dates: start: 20210223
  9. INFLECTRA [Suspect]
     Active Substance: INFLIXIMAB-DYYB
     Dosage: 600 MG, EVERY 6 WEEKS
     Route: 042
     Dates: start: 20210512
  10. INFLECTRA [Suspect]
     Active Substance: INFLIXIMAB-DYYB
     Dosage: 365 MG, EVERY 6 WEEKS
     Route: 042
     Dates: start: 20210112, end: 20210223
  11. PREDNISONE. [Concomitant]
     Active Substance: PREDNISONE
     Dosage: 40 MG, 1X/DAY ? TAPER BY 5 MG Q (EVERY) 7 DAYS UNTIL OFF
     Route: 048
     Dates: start: 20200520
  12. INFLECTRA [Suspect]
     Active Substance: INFLIXIMAB-DYYB
     Indication: CROHN^S DISEASE
     Dosage: 300 MG, 0, 2, 6, AND THEN EVERY 8 WEEKS
     Route: 042
     Dates: start: 20200625
  13. INFLECTRA [Suspect]
     Active Substance: INFLIXIMAB-DYYB
     Dosage: 300 MG,  0, 2, 6, AND THEN EVERY 8 WEEKS
     Route: 042
     Dates: start: 20200713
  14. INFLECTRA [Suspect]
     Active Substance: INFLIXIMAB-DYYB
     Dosage: 300 MG,  0, 2, 6, AND THEN EVERY 8 WEEKS
     Route: 042
     Dates: start: 20200806
  15. IMURAN [Concomitant]
     Active Substance: AZATHIOPRINE
     Dosage: 100 MG, 1X/DAY
     Route: 048

REACTIONS (22)
  - Fatigue [Unknown]
  - Dizziness [Not Recovered/Not Resolved]
  - Dehydration [Unknown]
  - Hyperphagia [Unknown]
  - Off label use [Unknown]
  - Intentional product use issue [Unknown]
  - Body temperature increased [Unknown]
  - Off label use [Unknown]
  - Heart rate increased [Not Recovered/Not Resolved]
  - Dyspnoea [Recovered/Resolved]
  - Weight decreased [Unknown]
  - Drug ineffective [Unknown]
  - Throat irritation [Unknown]
  - Drug level decreased [Unknown]
  - Feeling abnormal [Unknown]
  - Weight increased [Unknown]
  - Anxiety [Unknown]
  - Condition aggravated [Not Recovered/Not Resolved]
  - Heart rate irregular [Unknown]
  - Anaemia [Unknown]
  - Blood pressure fluctuation [Unknown]
  - Infusion site swelling [Recovering/Resolving]

NARRATIVE: CASE EVENT DATE: 20200713
